FAERS Safety Report 16402601 (Version 2)
Quarter: 2019Q2

REPORT INFORMATION
  Report Type: Spontaneous
  Country: CN (occurrence: CN)
  Receive Date: 20190607
  Receipt Date: 20190611
  Transmission Date: 20190711
  Serious: Yes (Other)
  Sender: FDA-Public Use
  Company Number: CN-ROCHE-2329125

PATIENT
  Age: 62 Year
  Sex: Female

DRUGS (16)
  1. HERCEPTIN [Suspect]
     Active Substance: TRASTUZUMAB
     Indication: BREAST CANCER
     Route: 065
     Dates: start: 201407, end: 201411
  2. PACLITAXEL LIPOSOME [Suspect]
     Active Substance: PACLITAXEL
     Indication: BREAST CANCER
     Route: 065
     Dates: start: 201603, end: 201604
  3. VINORELBINE [Concomitant]
     Active Substance: VINORELBINE\VINORELBINE TARTRATE
     Indication: BREAST CANCER
     Route: 065
     Dates: start: 20151101
  4. XELODA [Suspect]
     Active Substance: CAPECITABINE
     Route: 048
     Dates: start: 201701, end: 201703
  5. XELODA [Suspect]
     Active Substance: CAPECITABINE
     Route: 048
     Dates: start: 201801, end: 201803
  6. DOCETAXEL. [Concomitant]
     Active Substance: DOCETAXEL
     Indication: BREAST CANCER
     Route: 065
     Dates: start: 201308, end: 201402
  7. XELODA [Suspect]
     Active Substance: CAPECITABINE
     Indication: BREAST CANCER
     Route: 048
     Dates: start: 20160201
  8. XELODA [Suspect]
     Active Substance: CAPECITABINE
     Route: 048
     Dates: start: 201703, end: 201801
  9. PIRARUBICIN [Concomitant]
     Active Substance: PIRARUBICIN
     Indication: BREAST CANCER
     Route: 065
     Dates: start: 201308, end: 201402
  10. CISPLATIN. [Concomitant]
     Active Substance: CISPLATIN
     Indication: BREAST CANCER
     Route: 065
     Dates: start: 20151101
  11. HERCEPTIN [Suspect]
     Active Substance: TRASTUZUMAB
     Route: 065
     Dates: end: 20150601
  12. CYCLOPHOSPHAMIDE. [Concomitant]
     Active Substance: CYCLOPHOSPHAMIDE
     Indication: BREAST CANCER
     Route: 065
     Dates: start: 201308, end: 201402
  13. XELODA [Suspect]
     Active Substance: CAPECITABINE
     Route: 048
     Dates: start: 201803, end: 201805
  14. XELODA [Suspect]
     Active Substance: CAPECITABINE
     Route: 048
     Dates: start: 201805, end: 201807
  15. HERCEPTIN [Suspect]
     Active Substance: TRASTUZUMAB
     Route: 065
     Dates: start: 20170101
  16. GEMCITABINE [Concomitant]
     Active Substance: GEMCITABINE\GEMCITABINE HYDROCHLORIDE
     Indication: BREAST CANCER
     Route: 065
     Dates: start: 201407, end: 201411

REACTIONS (25)
  - Electrocardiogram T wave abnormal [Unknown]
  - Thyroid mass [Unknown]
  - Breast calcifications [Unknown]
  - Skin mass [Unknown]
  - Breast hyperplasia [Unknown]
  - Condition aggravated [Unknown]
  - Skin ulcer [Recovered/Resolved]
  - Lymphadenopathy [Unknown]
  - Aortic valve incompetence [Unknown]
  - Chest pain [Unknown]
  - Pain in extremity [Unknown]
  - Hyperlipidaemia [Unknown]
  - Bone marrow failure [Unknown]
  - Bundle branch block right [Unknown]
  - Mitral valve incompetence [Unknown]
  - Back pain [Unknown]
  - Tricuspid valve incompetence [Unknown]
  - Erythema [Unknown]
  - Effusion [Unknown]
  - Skin disorder [Unknown]
  - Ventricular compliance decreased [Unknown]
  - Sinus rhythm [Unknown]
  - Skin hypertrophy [Unknown]
  - Aortic disorder [Unknown]
  - Secretion discharge [Unknown]
